FAERS Safety Report 6791669-5 (Version None)
Quarter: 2010Q2

REPORT INFORMATION
  Report Type: 
  Country: None (occurrence: None)
  Receive Date: 20100624
  Receipt Date: 20100326
  Transmission Date: 20101027
  Serious: Yes (Other)
  Sender: FDA-Public Use
  Company Number: US-PFIZER INC-2008058369

PATIENT
  Sex: Female
  Weight: 61 kg

DRUGS (5)
  1. PROVERA [Suspect]
     Indication: HORMONE REPLACEMENT THERAPY
     Dosage: UNK
     Route: 048
     Dates: start: 19890101, end: 19920101
  2. PREMARIN [Suspect]
     Indication: HORMONE REPLACEMENT THERAPY
     Dosage: UNK
     Dates: start: 19890101, end: 19920101
  3. PREMPRO [Suspect]
     Indication: HORMONE REPLACEMENT THERAPY
     Dosage: 0.625/2.5MG UNK
     Dates: start: 19920101, end: 20010901
  4. SYNTHROID [Concomitant]
     Indication: THYROID DISORDER
     Dosage: UNK
     Dates: start: 19960101
  5. FOSAMAX [Concomitant]
     Indication: BONE DISORDER
     Dosage: UNK
     Dates: start: 19980801

REACTIONS (1)
  - BREAST CANCER [None]
